FAERS Safety Report 19928728 (Version 1)
Quarter: 2021Q4

REPORT INFORMATION
  Report Type: Spontaneous
  Country: US (occurrence: US)
  Receive Date: 20211007
  Receipt Date: 20211007
  Transmission Date: 20220303
  Serious: No
  Sender: FDA-Public Use
  Company Number: US-MELINTA THERAPEUTICS, LLC-US-MLNT-21-00081

PATIENT
  Age: 77 Year
  Sex: Female

DRUGS (1)
  1. VABOMERE [Suspect]
     Active Substance: MEROPENEM\VABORBACTAM
     Indication: Product used for unknown indication
     Dosage: DAY 1 OF 4 GRAMS MIXED IN 1L
     Route: 042

REACTIONS (1)
  - Infusion site extravasation [Unknown]
